FAERS Safety Report 7429126-5 (Version None)
Quarter: 2011Q2

REPORT INFORMATION
  Report Type: 
  Country: None (occurrence: None)
  Receive Date: 20110421
  Receipt Date: 20110414
  Transmission Date: 20111010
  Serious: No
  Sender: FDA-Public Use
  Company Number: US-B.I. PHARMACEUTICALS,INC./RIDGEFIELD-2011-BP-10880BP

PATIENT
  Sex: Female

DRUGS (12)
  1. METFORMIN [Concomitant]
     Indication: GLUCOSE TOLERANCE IMPAIRED
  2. ACETAMINOPHEN [Concomitant]
     Indication: BACK PAIN
  3. PRADAXA [Suspect]
     Indication: ATRIAL FIBRILLATION
     Dosage: 300 MG
     Route: 048
     Dates: start: 20110301
  4. ZOLPIDEM [Concomitant]
     Indication: SLEEP DISORDER
  5. DILTIAZEM [Concomitant]
     Indication: ATRIAL FIBRILLATION
  6. DIGOXIN [Concomitant]
     Indication: ATRIAL FIBRILLATION
  7. VITAMIN B-12 [Concomitant]
     Indication: PROPHYLAXIS
  8. VITAMIN D [Concomitant]
     Indication: PROPHYLAXIS
  9. PANTOPRAZOLE [Concomitant]
     Indication: GASTROOESOPHAGEAL REFLUX DISEASE
  10. TRAMADOL HCL [Concomitant]
     Indication: BACK PAIN
  11. FISH OIL [Concomitant]
     Indication: PROPHYLAXIS
  12. DOXYCYCLINE [Concomitant]
     Indication: ROSACEA

REACTIONS (2)
  - HEART RATE INCREASED [None]
  - PAIN IN EXTREMITY [None]
